FAERS Safety Report 9269638 (Version 1)
Quarter: 2013Q2

REPORT INFORMATION
  Report Type: Spontaneous
  Country: US (occurrence: US)
  Receive Date: 20130503
  Receipt Date: 20130503
  Transmission Date: 20140414
  Serious: No
  Sender: FDA-Public Use
  Company Number: US-PFIZER INC-2013135890

PATIENT
  Age: 57 Year
  Sex: Female

DRUGS (4)
  1. BENZYLPENICILLIN POTASSIUM [Suspect]
  2. KEFLEX [Suspect]
  3. SULFAMETHOXAZOLE [Suspect]
  4. CODEINE [Suspect]

REACTIONS (1)
  - Drug hypersensitivity [Unknown]
